FAERS Safety Report 8212879-6 (Version None)
Quarter: 2012Q1

REPORT INFORMATION
  Report Type: 
  Country: None (occurrence: None)
  Receive Date: 20120228
  Receipt Date: 20111121
  Transmission Date: 20120608
  Serious: Yes (Hospitalization, Other)
  Sender: FDA-Public Use
  Company Number: RB-34707-2011

PATIENT
  Age: 65 Year
  Sex: Female

DRUGS (2)
  1. SUBOXONE [Suspect]
     Indication: DRUG DEPENDENCE
     Dosage: 24 MG, SHE WAS TAKING THE DOSE 2-3 TIMES DAILY, SOMETIMES LESS THAN PRESCRIBED SUBLINGUAL
     Route: 060
     Dates: start: 20080101
  2. SUBOXONE [Suspect]
     Indication: DRUG DEPENDENCE
     Dosage: 24 MG, SOMETIMES TAKE LESS THAN PRESCRIBED, 2 TIMES DAILY SUBLINGUAL
     Route: 060
     Dates: start: 20110101

REACTIONS (4)
  - ABDOMINAL PAIN [None]
  - WEIGHT INCREASED [None]
  - UNDERDOSE [None]
  - STOMATITIS [None]
